FAERS Safety Report 8157342-6 (Version None)
Quarter: 2012Q1

REPORT INFORMATION
  Report Type: 
  Country: None (occurrence: None)
  Receive Date: 20120222
  Receipt Date: 20120214
  Transmission Date: 20120608
  Serious: Yes (Hospitalization)
  Sender: FDA-Public Use
  Company Number: CA-JNJFOC-20101006442

PATIENT
  Sex: Female
  Weight: 72.58 kg

DRUGS (15)
  1. STELARA [Suspect]
     Indication: PSORIASIS
     Route: 058
     Dates: start: 20100428
  2. CYMBALTA [Concomitant]
  3. PREVACID [Concomitant]
  4. NEURONTIN [Concomitant]
  5. CLONAZEPAM [Concomitant]
  6. SEROQUEL XR [Concomitant]
  7. CRESTOR [Concomitant]
  8. CELEBREX [Concomitant]
  9. CORTEF [Concomitant]
     Indication: HYPOGLYCAEMIA
     Dates: start: 20101007, end: 20101010
  10. VITAMIN D [Concomitant]
  11. SINGULAIR [Concomitant]
  12. COLD-FX [Suspect]
     Indication: MUSCULOSKELETAL DISCOMFORT
     Dates: start: 20101009, end: 20101010
  13. MATERNA [Concomitant]
  14. INVEGA [Concomitant]
  15. CALCIUM CARBONATE [Concomitant]

REACTIONS (3)
  - HYPOGLYCAEMIA [None]
  - RASH [None]
  - WEIGHT INCREASED [None]
